FAERS Safety Report 16208213 (Version 4)
Quarter: 2021Q2

REPORT INFORMATION
  Report Type: Spontaneous
  Country: JP (occurrence: JP)
  Receive Date: 20190417
  Receipt Date: 20210603
  Transmission Date: 20210716
  Serious: Yes (Life-Threatening, Hospitalization)
  Sender: FDA-Public Use
  Company Number: JP-MYLANLABS-2019M1032265

PATIENT
  Age: 40 Year
  Sex: Male
  Weight: 51.3 kg

DRUGS (13)
  1. PREDNISOLONE. [Suspect]
     Active Substance: PREDNISOLONE
     Indication: COLITIS ULCERATIVE
     Dosage: 40 MILLIGRAM, QD
     Route: 048
     Dates: start: 20160810
  2. MAINTATE [Concomitant]
     Active Substance: BISOPROLOL FUMARATE
     Indication: HYPERTENSION
     Dosage: 5 GRAM, QD
     Route: 048
     Dates: start: 20181212, end: 20190514
  3. LIALDA [Concomitant]
     Active Substance: MESALAMINE
     Indication: COLITIS ULCERATIVE
     Dosage: 2400 MILLIGRAM, QD
     Route: 048
     Dates: start: 20181017, end: 20190104
  4. PREDNISOLONE. [Suspect]
     Active Substance: PREDNISOLONE
     Indication: DERMATITIS ATOPIC
  5. BIO?THREE [Concomitant]
     Active Substance: HERBALS
     Indication: COLITIS ULCERATIVE
     Dosage: UNK
     Route: 048
     Dates: start: 20170419
  6. IMURAN [Concomitant]
     Active Substance: AZATHIOPRINE
     Indication: COLITIS ULCERATIVE
     Dosage: 50 GRAM, BID
     Route: 048
     Dates: start: 20160810, end: 20190104
  7. URIADEC [Concomitant]
     Active Substance: TOPIROXOSTAT
     Indication: HYPERURICAEMIA
     Dosage: 20 GRAM, BID
     Route: 048
     Dates: start: 20181017, end: 20181114
  8. PENTASA [Concomitant]
     Active Substance: MESALAMINE
     Indication: COLITIS ULCERATIVE
     Dosage: 1 MILLIGRAM, QD
     Route: 050
     Dates: start: 20180905, end: 20190104
  9. XELJANZ [Concomitant]
     Active Substance: TOFACITINIB CITRATE
     Indication: COLITIS ULCERATIVE
     Dosage: 5 MILLIGRAM, BID
     Route: 048
     Dates: start: 20181226, end: 20190104
  10. LAC?B [Concomitant]
     Active Substance: BIFIDOBACTERIUM SPP.
     Indication: COLITIS ULCERATIVE
     Dosage: UNK
     Route: 048
     Dates: start: 20170419
  11. ZINC. [Concomitant]
     Active Substance: ZINC
     Indication: ZINC DEFICIENCY
     Dosage: UNK
     Route: 048
     Dates: start: 20181226
  12. URIADEC [Concomitant]
     Active Substance: TOPIROXOSTAT
     Dosage: 40 GRAM, BID
     Route: 048
     Dates: start: 20181114, end: 20181212
  13. URIADEC [Concomitant]
     Active Substance: TOPIROXOSTAT
     Dosage: 60 GRAM, BID
     Route: 048
     Dates: start: 20181212

REACTIONS (2)
  - Shock [Recovered/Resolved with Sequelae]
  - Peritonitis [Recovered/Resolved with Sequelae]

NARRATIVE: CASE EVENT DATE: 20190104
